FAERS Safety Report 18741726 (Version 2)
Quarter: 2021Q1

REPORT INFORMATION
  Report Type: Report from Study
  Country: None (occurrence: AU)
  Receive Date: 20210114
  Receipt Date: 20210202
  Transmission Date: 20210419
  Serious: Yes (Other)
  Sender: FDA-Public Use
  Company Number: AU-ABBVIE-21K-008-3728556-00

PATIENT
  Sex: Female

DRUGS (1)
  1. HUMIRA [Suspect]
     Active Substance: ADALIMUMAB
     Indication: RHEUMATOID ARTHRITIS
     Route: 058

REACTIONS (6)
  - Injection site warmth [Unknown]
  - Injection site urticaria [Unknown]
  - Food allergy [Not Recovered/Not Resolved]
  - Injection site induration [Unknown]
  - Injection site erythema [Unknown]
  - Malignant melanoma [Unknown]
